FAERS Safety Report 5877717-5 (Version None)
Quarter: 2008Q3

REPORT INFORMATION
  Report Type: 
  Country: None (occurrence: None)
  Receive Date: 20080911
  Receipt Date: 20080901
  Transmission Date: 20090109
  Serious: Yes (Other)
  Sender: FDA-Public Use
  Company Number: HR-JNJFOC-20080900611

PATIENT
  Age: 75 Year
  Sex: Male

DRUGS (4)
  1. RISPOLEPT [Suspect]
     Indication: DRUG USE FOR UNKNOWN INDICATION
     Route: 048
  2. MODITEN [Concomitant]
  3. PRAZINE [Concomitant]
  4. AKINETON [Concomitant]

REACTIONS (3)
  - ANGINA PECTORIS [None]
  - LOSS OF CONSCIOUSNESS [None]
  - MYOCARDIAL INFARCTION [None]
